FAERS Safety Report 7275071-8 (Version None)
Quarter: 2011Q1

REPORT INFORMATION
  Report Type: 
  Country: None (occurrence: None)
  Receive Date: 20110204
  Receipt Date: 20110201
  Transmission Date: 20110831
  Serious: Yes (Hospitalization)
  Sender: FDA-Public Use
  Company Number: US-ROCHE-751555

PATIENT
  Sex: Female

DRUGS (1)
  1. PEGASYS [Suspect]
     Dosage: FORM: INJECTABLE SOLUTION
     Route: 058
     Dates: start: 20100907, end: 20101109

REACTIONS (4)
  - MALAISE [None]
  - SOMNOLENCE [None]
  - CONVULSION [None]
  - PRODUCT QUALITY ISSUE [None]
